FAERS Safety Report 11999046 (Version 1)
Quarter: 2016Q1

REPORT INFORMATION
  Report Type: Spontaneous
  Country: US (occurrence: None)
  Receive Date: 20160203
  Receipt Date: 20160203
  Transmission Date: 20160526
  Serious: Yes (Life-Threatening)
  Sender: FDA-Public Use
  Company Number: None

PATIENT
  Age: 6 Year
  Sex: Male
  Weight: 17.8 kg

DRUGS (3)
  1. VINCRISTINE 2 MG/2 ML HOSPIRA [Suspect]
     Active Substance: VINCRISTINE SULFATE
     Indication: ACUTE LYMPHOCYTIC LEUKAEMIA
     Route: 042
     Dates: start: 20160122, end: 20160122
  2. ONDANSETRON [Concomitant]
     Active Substance: ONDANSETRON
  3. NORMAL SALINE 0.9% HOSPIRA [Suspect]
     Active Substance: SODIUM CHLORIDE
     Indication: PRODUCT USED FOR UNKNOWN INDICATION
     Route: 042
     Dates: start: 20160122, end: 20160122

REACTIONS (5)
  - Hypotension [None]
  - Depressed level of consciousness [None]
  - Hypoxia [None]
  - Cough [None]
  - Vomiting [None]

NARRATIVE: CASE EVENT DATE: 20160122
